FAERS Safety Report 14138906 (Version 2)
Quarter: 2017Q4

REPORT INFORMATION
  Report Type: Spontaneous
  Country: US (occurrence: US)
  Receive Date: 20171027
  Receipt Date: 20171216
  Transmission Date: 20180321
  Serious: No
  Sender: FDA-Public Use
  Company Number: US-009507513-1710USA005071

PATIENT
  Age: 36 Year
  Sex: Female

DRUGS (1)
  1. NUVARING [Suspect]
     Active Substance: ETHINYL ESTRADIOL\ETONOGESTREL
     Dosage: RING; 21 DAYS IN, 7 DAYS OUT; STRENGTH: 0.015/0.12 (NO UNITS PROVIDED)
     Route: 067
     Dates: start: 2017

REACTIONS (7)
  - Swelling face [Unknown]
  - Vaginal haemorrhage [Unknown]
  - Withdrawal bleed [Unknown]
  - Urticaria [Unknown]
  - Product quality issue [Unknown]
  - Skin reaction [Unknown]
  - Device expulsion [Recovered/Resolved]

NARRATIVE: CASE EVENT DATE: 2017
